FAERS Safety Report 4562386-7 (Version None)
Quarter: 2005Q1

REPORT INFORMATION
  Report Type: 
  Country: None (occurrence: None)
  Receive Date: 20050127
  Receipt Date: 20030923
  Transmission Date: 20050727
  Serious: No
  Sender: FDA-Public Use
  Company Number: US-BRISTOL-MYERS SQUIBB COMPANY-12392684

PATIENT
  Age: 30 Year
  Sex: Male
  Weight: 131 kg

DRUGS (1)
  1. KENALOG-10 [Suspect]
     Indication: ALOPECIA AREATA
     Route: 051
     Dates: start: 20030721

REACTIONS (2)
  - PRURITUS [None]
  - URTICARIA [None]
